FAERS Safety Report 14438960 (Version 1)
Quarter: 2018Q1

REPORT INFORMATION
  Report Type: Spontaneous
  Country: US (occurrence: US)
  Receive Date: 20180125
  Receipt Date: 20180125
  Transmission Date: 20180509
  Serious: No
  Sender: FDA-Public Use
  Company Number: US-UNITED THERAPEUTICS-UNT-2017-013725

PATIENT
  Sex: Female

DRUGS (4)
  1. ORENITRAM [Suspect]
     Active Substance: TREPROSTINIL
     Dosage: 9.375 MG, TID
     Route: 048
  2. ORENITRAM [Suspect]
     Active Substance: TREPROSTINIL
     Indication: PULMONARY ARTERIAL HYPERTENSION
     Dosage: 8.875 MG, TID
     Route: 048
     Dates: start: 20170706
  3. ORENITRAM [Suspect]
     Active Substance: TREPROSTINIL
     Dosage: 9.5 MG, TID
     Route: 048
  4. ORENITRAM [Suspect]
     Active Substance: TREPROSTINIL
     Dosage: 9.25 MG, TID
     Route: 048
     Dates: start: 20171026

REACTIONS (5)
  - Nausea [Recovering/Resolving]
  - Impaired gastric emptying [Recovering/Resolving]
  - Diarrhoea [Recovering/Resolving]
  - Headache [Unknown]
  - Vomiting [Recovering/Resolving]

NARRATIVE: CASE EVENT DATE: 2017
